FAERS Safety Report 5963452-1 (Version None)
Quarter: 2008Q4

REPORT INFORMATION
  Report Type: 
  Country: None (occurrence: None)
  Receive Date: 20081120
  Receipt Date: 20081111
  Transmission Date: 20090506
  Serious: Yes (Other)
  Sender: FDA-Public Use
  Company Number: US025016

PATIENT
  Age: 45 Year
  Sex: Female
  Weight: 102.0593 kg

DRUGS (4)
  1. PROVIGIL [Suspect]
     Indication: SLEEP APNOEA SYNDROME
     Dosage: 400 MG QD ORAL
     Route: 048
     Dates: start: 20070501
  2. NEXIUM [Concomitant]
  3. CLONAZEPAM [Concomitant]
  4. CYMBALTA [Concomitant]

REACTIONS (6)
  - ASTHMA [None]
  - CONDITION AGGRAVATED [None]
  - IMPAIRED HEALING [None]
  - RASH PRURITIC [None]
  - SALIVARY HYPERSECRETION [None]
  - TONGUE ULCERATION [None]
